FAERS Safety Report 9401572 (Version 1)
Quarter: 2013Q3

REPORT INFORMATION
  Report Type: Report from Study
  Country: US (occurrence: US)
  Receive Date: 20130716
  Receipt Date: 20130716
  Transmission Date: 20140515
  Serious: Yes (Other)
  Sender: FDA-Public Use
  Company Number: US-ROCHE-1248757

PATIENT
  Sex: 0

DRUGS (4)
  1. BEVACIZUMAB [Suspect]
     Indication: BREAST CANCER
     Dosage: OVER 30-90 MIN ON DAY 1,3,5,7,9,11,13,15 AND 17. DOSE LAST ADMINISTERED ON 08/MAR/2011 IS 630 MG. (C
     Route: 042
     Dates: start: 20101116, end: 20110308
  2. PACLITAXEL [Suspect]
     Indication: BREAST CANCER
     Dosage: DOSE LAST ADMINISTERED ON 02/FEB/2011 OF 136 MG. (CYCLE 12, DAY 1)
     Route: 042
     Dates: start: 20101116, end: 20110201
  3. DOXORUBICIN [Suspect]
     Indication: BREAST CANCER
     Dosage: OVER 5-10 MIN ON DAY 1 OF WKS 13,15,17 AND 19. LAST ADMINISTERED DATE WAS 22/MAR/2011 (CYCLE 16,  DA
     Route: 064
     Dates: start: 20101116, end: 20110322
  4. CYCLOPHOSPHAMID [Suspect]
     Indication: BREAST CANCER
     Dosage: OVER 5-30 MIN ON DAT 1 OF WKS 13,15,17 AND 19.LAST ADMINISTERED DATE WAS 22/MAR/2011 (CYCLE 16,  DAY
     Route: 064
     Dates: start: 20101116

REACTIONS (2)
  - Limb reduction defect [Unknown]
  - Maternal exposure timing unspecified [Unknown]
